FAERS Safety Report 4390022-1 (Version None)
Quarter: 2004Q2

REPORT INFORMATION
  Report Type: 
  Country: None (occurrence: None)
  Receive Date: 20040630
  Receipt Date: 20040617
  Transmission Date: 20050107
  Serious: Yes (Other)
  Sender: FDA-Public Use
  Company Number: 2004215830DE

PATIENT
  Age: 47 Year
  Sex: Male

DRUGS (8)
  1. BEXTRA [Suspect]
     Indication: SCIATICA
     Dosage: 20 MG, QD, ORAL
     Route: 048
     Dates: start: 20040507, end: 20040517
  2. ALLOPURINOL [Concomitant]
  3. NEURONTIN [Concomitant]
  4. NEURO-RATIOPHARM [Concomitant]
  5. SOLEDUM (CINEOLE) [Concomitant]
  6. METOPROLOL ^RATIOPHARM^ [Concomitant]
  7. VOLTAREN [Concomitant]
  8. DICLOFENAC [Concomitant]

REACTIONS (8)
  - ARTHRALGIA [None]
  - BODY TEMPERATURE INCREASED [None]
  - EXANTHEM [None]
  - IMPAIRED WORK ABILITY [None]
  - RASH PRURITIC [None]
  - RASH PUSTULAR [None]
  - RASH VESICULAR [None]
  - SWELLING FACE [None]
